FAERS Safety Report 10190229 (Version 2)
Quarter: 2014Q2

REPORT INFORMATION
  Report Type: Report from Study
  Country: JP (occurrence: JP)
  Receive Date: 20140522
  Receipt Date: 20140617
  Transmission Date: 20141212
  Serious: Yes (Hospitalization)
  Sender: FDA-Public Use
  Company Number: JP-EISAI INC-E2020-14024-SOL-JP

PATIENT
  Age: 76 Year
  Sex: Female

DRUGS (8)
  1. ARICEPT [Suspect]
     Indication: DEMENTIA ALZHEIMER^S TYPE
     Route: 048
     Dates: start: 20131111, end: 20131125
  2. ARICEPT [Suspect]
     Route: 048
     Dates: start: 20131126, end: 20140130
  3. BAYASPIRIN [Concomitant]
  4. AMLODIPINE [Concomitant]
  5. GASTER [Concomitant]
  6. RENIVACE [Concomitant]
  7. LIPITOR [Concomitant]
  8. FEMARA [Concomitant]

REACTIONS (1)
  - Depressed level of consciousness [Recovered/Resolved]
